FAERS Safety Report 7979167-4 (Version None)
Quarter: 2011Q4

REPORT INFORMATION
  Report Type: 
  Country: None (occurrence: None)
  Receive Date: 20111214
  Receipt Date: 20111207
  Transmission Date: 20120403
  Serious: Yes (Hospitalization)
  Sender: FDA-Public Use
  Company Number: AT-ABBOTT-11P-009-0727309-00

PATIENT
  Age: 55 Year
  Sex: Male
  Weight: 73 kg

DRUGS (17)
  1. PANTOPRAZOLE SODIUM [Concomitant]
     Indication: PRODUCT USED FOR UNKNOWN INDICATION
     Route: 048
     Dates: start: 20101021
  2. ERYPO [Concomitant]
     Indication: PRODUCT USED FOR UNKNOWN INDICATION
     Dosage: 10000 IE
     Route: 058
  3. ROCALTROL [Concomitant]
     Indication: HYPERPARATHYROIDISM SECONDARY
  4. PARICALCITOL [Suspect]
     Indication: RENAL FAILURE CHRONIC
     Dates: start: 20101021
  5. SODIUM POLYSTYRENE SULFONATE [Concomitant]
     Indication: PRODUCT USED FOR UNKNOWN INDICATION
     Dosage: PULVER AS NEEDED
     Route: 048
     Dates: start: 20110610
  6. RENAGEL [Concomitant]
     Indication: HYPERPARATHYROIDISM SECONDARY
  7. EBRANTIL [Concomitant]
     Indication: PRODUCT USED FOR UNKNOWN INDICATION
     Route: 048
  8. ROCALTROL [Concomitant]
     Route: 048
  9. ASPIRIN [Concomitant]
     Indication: PRODUCT USED FOR UNKNOWN INDICATION
     Route: 048
     Dates: start: 20101021
  10. CARVEDILOL [Concomitant]
     Indication: PRODUCT USED FOR UNKNOWN INDICATION
     Route: 048
     Dates: start: 20101021
  11. CONCOR [Concomitant]
     Indication: PRODUCT USED FOR UNKNOWN INDICATION
     Route: 048
  12. VENOFER [Concomitant]
     Indication: PRODUCT USED FOR UNKNOWN INDICATION
     Route: 042
     Dates: start: 20110610
  13. AMLODIPINE [Concomitant]
     Indication: PRODUCT USED FOR UNKNOWN INDICATION
     Route: 048
  14. HALCION [Concomitant]
     Indication: PRODUCT USED FOR UNKNOWN INDICATION
     Route: 048
     Dates: start: 20101230
  15. NOVOLOG [Concomitant]
     Indication: PRODUCT USED FOR UNKNOWN INDICATION
     Dosage: 100 E/ML
     Route: 058
  16. RENAGEL [Concomitant]
     Route: 048
  17. SUPRESSIN [Concomitant]
     Indication: PRODUCT USED FOR UNKNOWN INDICATION
     Route: 048
     Dates: start: 20110610

REACTIONS (4)
  - DIZZINESS [None]
  - VOMITING [None]
  - DYSPNOEA [None]
  - CORONARY ARTERY DISEASE [None]
